FAERS Safety Report 19912952 (Version 6)
Quarter: 2021Q4

REPORT INFORMATION
  Report Type: Report from Study
  Country: US (occurrence: US)
  Receive Date: 20211004
  Receipt Date: 20211027
  Transmission Date: 20220303
  Serious: No
  Sender: FDA-Public Use
  Company Number: NVSC2021US223368

PATIENT
  Sex: Female
  Weight: 43.09 kg

DRUGS (4)
  1. TREPROSTINIL [Suspect]
     Active Substance: TREPROSTINIL
     Indication: Pulmonary arterial hypertension
     Dosage: 44 NG/KG/MIN CONT
     Route: 058
     Dates: start: 20210924
  2. TREPROSTINIL [Suspect]
     Active Substance: TREPROSTINIL
     Dosage: UNK
     Route: 042
  3. SILDENAFIL CITRATE [Concomitant]
     Active Substance: SILDENAFIL CITRATE
     Indication: Product used for unknown indication
     Dosage: UNK
     Route: 065
  4. OPSUMIT [Concomitant]
     Active Substance: MACITENTAN
     Indication: Product used for unknown indication
     Dosage: UNK
     Route: 065

REACTIONS (10)
  - Pain in extremity [Recovered/Resolved]
  - Malaise [Unknown]
  - Urticaria [Unknown]
  - Chest discomfort [Unknown]
  - Hypersensitivity [Unknown]
  - Dizziness [Recovered/Resolved]
  - Infusion site pain [Unknown]
  - Dyspnoea [Unknown]
  - Fatigue [Unknown]
  - Rash [Unknown]
